FAERS Safety Report 16137936 (Version 1)
Quarter: 2019Q2

REPORT INFORMATION
  Report Type: Spontaneous
  Country: CN (occurrence: CN)
  Receive Date: 20190401
  Receipt Date: 20190401
  Transmission Date: 20190711
  Serious: Yes (Other)
  Sender: FDA-Public Use
  Company Number: CN-BAXTER-2019BAX006210

PATIENT
  Age: 4 Year
  Sex: Male
  Weight: 18 kg

DRUGS (20)
  1. DEXAMETHASONE SODIUM PHOSPHATE. [Suspect]
     Active Substance: DEXAMETHASONE SODIUM PHOSPHATE
     Dosage: DOSE RE-INTRODUCED METHOTREXATE FOR INJECTION + DEXAMETHASONE SODIUM PHOSPHATE INJECTION + 0.9% SODI
     Route: 037
  2. DEXAMETHASONE SODIUM PHOSPHATE. [Suspect]
     Active Substance: DEXAMETHASONE SODIUM PHOSPHATE
     Dosage: DOSE RE-INTRODUCED, CYTARABINE FOR INJECTION (CYTOSAR) + DEXAMETHASONE SODIUM PHOSPHATE INJECTION +
     Route: 037
  3. CYTARABINE HYDROCHLORIDE [Suspect]
     Active Substance: CYTARABINE HYDROCHLORIDE
     Indication: ACUTE LYMPHOCYTIC LEUKAEMIA
     Dosage: CYTARABINE FOR INJECTION 0.04 G + 5% GLUCOSE INJECTION 250 ML
     Route: 041
     Dates: start: 20190210, end: 20190217
  4. CYTARABINE HYDROCHLORIDE [Suspect]
     Active Substance: CYTARABINE HYDROCHLORIDE
     Dosage: DOSE RE-INTRODUCED, CYTARABINE FOR INJECTION  5% GLUCOSE INJECTION.
     Route: 041
  5. 5% GLUCOSE  INJECTION [Suspect]
     Active Substance: DEXTROSE
     Dosage: DOSE RE-INTRODUCED, CYTARABINE FOR INJECTION + 5% GLUCOSE INJECTION
     Route: 041
  6. ENDOXAN [Suspect]
     Active Substance: CYCLOPHOSPHAMIDE
     Indication: ACUTE LYMPHOCYTIC LEUKAEMIA
     Dosage: CYCLOPHOSPHAMIDE FOR INJECTION 0.8 G + 0.9% SODIUM CHLORIDE INJECTION 500 ML IVGTT
     Route: 041
     Dates: start: 20190210, end: 20190210
  7. 0.9% SODIUM CHLORIDE INJECTION [Suspect]
     Active Substance: SODIUM CHLORIDE
     Dosage: DOSE RE-INTRODUCED WITH METHOTREXATE FOR INJECTION + DEXAMETHASONE SODIUM PHOSPHATE INJECTION + 0.9%
     Route: 037
  8. METHOTREXATE. [Suspect]
     Active Substance: METHOTREXATE
     Indication: ACUTE LYMPHOCYTIC LEUKAEMIA
     Dosage: METHOTREXATE FOR INJECTION 12.5 MG + DEXAMETHASONE SODIUM PHOSPHATE INJECTION 2.5 MG + 0.9% SODIUM C
     Route: 037
     Dates: start: 20190210, end: 20190210
  9. METHOTREXATE. [Suspect]
     Active Substance: METHOTREXATE
     Dosage: DOSE RE-INTRODUCED, METHOTREXATE FOR INJECTION + DEXAMETHASONE SODIUM PHOSPHATE INJECTION + 0.9% SOD
     Route: 037
  10. 0.9% SODIUM CHLORIDE INJECTION [Suspect]
     Active Substance: SODIUM CHLORIDE
     Dosage: DOSE RE-INTRODUCED, CYCLOPHOSPHAMIDE FOR INJECTION + 0.9% SODIUM CHLORIDE INJECTION
     Route: 041
  11. 0.9% SODIUM CHLORIDE INJECTION [Suspect]
     Active Substance: SODIUM CHLORIDE
     Dosage: DOSE RE-INTRODUCED CYTARABINE FOR INJECTION (CYTOSAR) + DEXAMETHASONE SODIUM PHOSPHATE INJECTION +0.
     Route: 037
  12. 0.9% SODIUM CHLORIDE INJECTION [Suspect]
     Active Substance: SODIUM CHLORIDE
     Indication: MEDICATION DILUTION
     Dosage: CYCLOPHOSPHAMIDE FOR INJECTION 0.8 G + 0.9% SODIUM CHLORIDE INJECTION 500 ML
     Route: 041
     Dates: start: 20190210, end: 20190210
  13. DEXAMETHASONE SODIUM PHOSPHATE. [Suspect]
     Active Substance: DEXAMETHASONE SODIUM PHOSPHATE
     Dosage: CYTARABINE FOR INJECTION (CYTOSAR) 0.035 G+ DEXAMETHASONE SODIUM PHOSPHATE INJECTION 2.5 MG+0.9% SOD
     Route: 037
     Dates: start: 20190210, end: 20190210
  14. CYTOSAR [Suspect]
     Active Substance: CYTARABINE
     Indication: ACUTE LYMPHOCYTIC LEUKAEMIA
     Dosage: CYTARABINE FOR INJECTION (CYTOSAR) 0.035 G+ DEXAMETHASONE SODIUM PHOSPHATE INJECTION 2.5 MG+0.9% SOD
     Route: 037
     Dates: start: 20190210, end: 20190210
  15. 0.9% SODIUM CHLORIDE INJECTION [Suspect]
     Active Substance: SODIUM CHLORIDE
     Dosage: CYTARABINE FOR INJECTION (CYTOSAR) 0.035 G+ DEXAMETHASONE SODIUM PHOSPHATE INJECTION 2.5 MG+0.9% SOD
     Route: 037
     Dates: start: 20190210, end: 20190210
  16. 5% GLUCOSE  INJECTION [Suspect]
     Active Substance: DEXTROSE
     Indication: MEDICATION DILUTION
     Dosage: CYTARABINE FOR INJECTION 0.04 G + 5% GLUCOSE INJECTION 250 ML
     Route: 041
     Dates: start: 20190210, end: 20190217
  17. DEXAMETHASONE SODIUM PHOSPHATE. [Suspect]
     Active Substance: DEXAMETHASONE SODIUM PHOSPHATE
     Indication: ACUTE LYMPHOCYTIC LEUKAEMIA
     Dosage: METHOTREXATE FOR INJECTION 12.5 MG + DEXAMETHASONE SODIUM PHOSPHATE INJECTION 2.5 MG + 0.9% SODIUM
     Route: 037
     Dates: start: 20190210, end: 20190210
  18. CYTOSAR [Suspect]
     Active Substance: CYTARABINE
     Dosage: DOSE RE-INTRODUCED, CYTARABINE FOR INJECTION (CYTOSAR) + DEXAMETHASONE SODIUM PHOSPHATE INJECTION +
     Route: 037
  19. ENDOXAN [Suspect]
     Active Substance: CYCLOPHOSPHAMIDE
     Dosage: DOSE RE-INTRODUCED, CYCLOPHOSPHAMIDE FOR INJECTION + 0.9% SODIUM CHLORIDE INJECTION IVGTT
     Route: 041
  20. 0.9% SODIUM CHLORIDE INJECTION [Suspect]
     Active Substance: SODIUM CHLORIDE
     Dosage: METHOTREXATE FOR INJECTION 12.5 MG + DEXAMETHASONE SODIUM PHOSPHATE INJECTION 2.5 MG + 0.9% SODIUM
     Route: 037
     Dates: start: 20190210, end: 20190210

REACTIONS (2)
  - Bone marrow failure [Recovering/Resolving]
  - Depression [Unknown]

NARRATIVE: CASE EVENT DATE: 20190216
